FAERS Safety Report 12900769 (Version 2)
Quarter: 2016Q4

REPORT INFORMATION
  Report Type: Spontaneous
  Country: US (occurrence: US)
  Receive Date: 20161101
  Receipt Date: 20161202
  Transmission Date: 20170207
  Serious: Yes (Other)
  Sender: FDA-Public Use
  Company Number: US-INCYTE CORPORATION-2016IN006705

PATIENT
  Age: 85 Year
  Sex: Female

DRUGS (1)
  1. JAKAFI [Suspect]
     Active Substance: RUXOLITINIB
     Indication: POLYCYTHAEMIA VERA
     Dosage: 10 MG, BID
     Route: 048
     Dates: start: 20160427

REACTIONS (10)
  - Gait disturbance [Unknown]
  - Fatigue [Unknown]
  - Memory impairment [Unknown]
  - Activities of daily living impaired [Unknown]
  - Apathy [Unknown]
  - Drug dose omission [Unknown]
  - Depression suicidal [Unknown]
  - Depressed mood [Unknown]
  - Crying [Unknown]
  - Pain [Unknown]

NARRATIVE: CASE EVENT DATE: 20161020
